FAERS Safety Report 6457562-2 (Version None)
Quarter: 2009Q4

REPORT INFORMATION
  Report Type: 
  Country: None (occurrence: None)
  Receive Date: 20091125
  Receipt Date: 20091116
  Transmission Date: 20100525
  Serious: Yes (Hospitalization)
  Sender: FDA-Public Use
  Company Number: PHHY2009FR50875

PATIENT
  Sex: Female

DRUGS (9)
  1. ZOMETA [Suspect]
     Dosage: 4 MG, UNK
  2. CORTANCYL [Concomitant]
     Dosage: 30 MG, 1 TABLET DAILY
     Route: 048
  3. STILNOX [Concomitant]
     Dosage: 1TABLET DAILY
     Route: 048
  4. ATACAND [Concomitant]
     Dosage: 8 MG, 1 TABLET DAILY
     Route: 048
  5. EFFEXOR [Concomitant]
     Dosage: 37.5 MG, 1CAPSULE DAILY
     Route: 048
  6. ESOMEPRAZOLE [Concomitant]
     Dosage: 20 MG, 1 CAPSULE DAILY
     Route: 048
  7. ISOPTIN [Concomitant]
     Dosage: 240 MG, 0.5 CAPSULE DAILY
     Route: 048
  8. LAROXYL [Concomitant]
     Dosage: 40 MG, 8 DROPS DAILY
     Route: 048
  9. LORAZEPAM [Concomitant]
     Dosage: 2 TABLETS DAILY
     Route: 048

REACTIONS (2)
  - DISORIENTATION [None]
  - HYPOCALCAEMIA [None]
